FAERS Safety Report 12502235 (Version 1)
Quarter: 2016Q2

REPORT INFORMATION
  Report Type: Spontaneous
  Country: VE (occurrence: VE)
  Receive Date: 20160627
  Receipt Date: 20160627
  Transmission Date: 20160815
  Serious: Yes (Hospitalization, Other)
  Sender: FDA-Public Use
  Company Number: PHHY2016VE087331

PATIENT
  Age: 14 Year
  Sex: Male

DRUGS (3)
  1. VALCOTE [Suspect]
     Active Substance: VALPROATE SODIUM
     Indication: EPILEPSY
     Route: 065
  2. TRILEPTAL [Suspect]
     Active Substance: OXCARBAZEPINE
     Indication: EPILEPSY
     Dosage: 600 MG, Q12H
     Route: 048
  3. TRILEPTAL [Suspect]
     Active Substance: OXCARBAZEPINE
     Indication: EPILEPSY
     Route: 048

REACTIONS (4)
  - Autism [Unknown]
  - Intellectual disability [Unknown]
  - Seizure [Unknown]
  - Speech disorder [Unknown]

NARRATIVE: CASE EVENT DATE: 201501
